FAERS Safety Report 23679040 (Version 1)
Quarter: 2024Q1

REPORT INFORMATION
  Report Type: Spontaneous
  Country: US (occurrence: US)
  Receive Date: 20240327
  Receipt Date: 20240327
  Transmission Date: 20240409
  Serious: No
  Sender: FDA-Public Use
  Company Number: MIQ-12062023-643

PATIENT

DRUGS (1)
  1. BYFAVO [Suspect]
     Active Substance: REMIMAZOLAM BESYLATE
     Indication: Sedative therapy
     Dosage: UNK
     Route: 042

REACTIONS (2)
  - Unwanted awareness during anaesthesia [Unknown]
  - Drug ineffective [Unknown]
